FAERS Safety Report 5573573-3 (Version None)
Quarter: 2007Q4

REPORT INFORMATION
  Report Type: 
  Country: None (occurrence: None)
  Receive Date: 20071226
  Receipt Date: 20071220
  Transmission Date: 20080405
  Serious: Yes (Other)
  Sender: FDA-Public Use
  Company Number: US-ASTRAZENECA-2007UW28764

PATIENT
  Age: 61 Year
  Sex: Female
  Weight: 87.5 kg

DRUGS (5)
  1. ARIMIDEX [Suspect]
     Indication: BREAST CANCER
     Route: 048
     Dates: start: 20070801, end: 20071101
  2. ARIMIDEX [Suspect]
     Route: 048
     Dates: start: 20071218
  3. MULTI-VITAMIN [Concomitant]
  4. VIACTIV (CALCIUM) [Concomitant]
  5. MOTRIN [Concomitant]

REACTIONS (2)
  - HYSTERECTOMY [None]
  - URTICARIA [None]
